FAERS Safety Report 4913453-7 (Version None)
Quarter: 2006Q1

REPORT INFORMATION
  Report Type: 
  Country: None (occurrence: None)
  Receive Date: 20060113
  Receipt Date: 20051007
  Transmission Date: 20060701
  Serious: Yes (Other)
  Sender: FDA-Public Use
  Company Number: HQWYE949410OCT05

PATIENT
  Age: 41 Year
  Sex: Female
  Weight: 59.02 kg

DRUGS (8)
  1. PREMPRO [Suspect]
     Indication: MENORRHAGIA
     Dosage: 0.625 MG/5 MG, ORAL
     Route: 048
  2. PERCOCET (OXYCODONE HYDROCHLORIDE/OXYCODONE) [Concomitant]
  3. CYCLOBENZAPRINE HCL [Concomitant]
  4. CLONAZEPAM [Concomitant]
  5. SYNTHROID [Concomitant]
  6. HYDROCORTISONE [Concomitant]
  7. PREVACID [Concomitant]
  8. WARFARIN SODIUM [Concomitant]

REACTIONS (12)
  - ALOPECIA [None]
  - ANXIETY [None]
  - BLOOD CHOLESTEROL INCREASED [None]
  - DEPRESSION [None]
  - DIZZINESS [None]
  - HEADACHE [None]
  - PAIN IN EXTREMITY [None]
  - SYNCOPE [None]
  - THROMBOSIS [None]
  - VAGINAL HAEMORRHAGE [None]
  - VISION BLURRED [None]
  - VULVOVAGINAL MYCOTIC INFECTION [None]
